FAERS Safety Report 8479313-2 (Version None)
Quarter: 2012Q2

REPORT INFORMATION
  Report Type: 
  Country: None (occurrence: None)
  Receive Date: 20120629
  Receipt Date: 20120622
  Transmission Date: 20120825
  Serious: Yes (Hospitalization)
  Sender: FDA-Public Use
  Company Number: IT-GLAXOSMITHKLINE-B0811215A

PATIENT
  Sex: Female

DRUGS (1)
  1. HYCAMTIN [Suspect]
     Indication: CERVIX CANCER METASTATIC
     Dosage: 2.3MG PER DAY
     Route: 042
     Dates: start: 20120410, end: 20120413

REACTIONS (3)
  - RENAL FAILURE ACUTE [None]
  - ANAEMIA [None]
  - THROMBOCYTOPENIA [None]
